FAERS Safety Report 20778219 (Version 1)
Quarter: 2022Q2

REPORT INFORMATION
  Report Type: Spontaneous
  Country: US (occurrence: None)
  Receive Date: 20220502
  Receipt Date: 20220502
  Transmission Date: 20220721
  Serious: Yes (Hospitalization)
  Sender: FDA-Public Use
  Company Number: None

PATIENT
  Age: 36 Year
  Sex: Female
  Weight: 60.3 kg

DRUGS (2)
  1. TINIDAZOLE [Suspect]
     Active Substance: TINIDAZOLE
     Indication: Bacterial vaginosis
     Dosage: OTHER QUANTITY : 2 TABLET(S);?FREQUENCY : DAILY;?
     Route: 048
     Dates: start: 20220321, end: 20220323
  2. METRONIDAZOLE [Suspect]
     Active Substance: METRONIDAZOLE
     Indication: Bacterial vaginosis
     Dosage: OTHER QUANTITY : 1 TABLET(S);?FREQUENCY : EVERY 12 HOURS;?
     Route: 048
     Dates: end: 20220428

REACTIONS (7)
  - Rash pruritic [None]
  - Rash [None]
  - Tachycardia [None]
  - Paraesthesia [None]
  - Hypoaesthesia [None]
  - Hypoaesthesia [None]
  - Hypoaesthesia [None]

NARRATIVE: CASE EVENT DATE: 20220328
